FAERS Safety Report 8179289-1 (Version None)
Quarter: 2012Q1

REPORT INFORMATION
  Report Type: 
  Country: None (occurrence: None)
  Receive Date: 20120229
  Receipt Date: 20120229
  Transmission Date: 20120608
  Serious: Yes (Death, Life-Threatening, Hospitalization)
  Sender: FDA-Public Use
  Company Number: None

PATIENT
  Age: 67 Year
  Sex: Female
  Weight: 68.0396 kg

DRUGS (2)
  1. VENTILATOR [Concomitant]
  2. BLEOMYCIN SULFATE [Suspect]
     Indication: MALIGNANT PLEURAL EFFUSION
     Dosage: 60 X 1 GIVEN VIA PLEURAL SPACE
     Dates: start: 20111216

REACTIONS (4)
  - DIALYSIS [None]
  - ACUTE RESPIRATORY DISTRESS SYNDROME [None]
  - PNEUMONIA [None]
  - RENAL FAILURE [None]
